FAERS Safety Report 24591601 (Version 3)
Quarter: 2025Q1

REPORT INFORMATION
  Report Type: Report from Study
  Country: CA (occurrence: CA)
  Receive Date: 20241108
  Receipt Date: 20250328
  Transmission Date: 20250408
  Serious: Yes (Hospitalization, Other)
  Sender: JOHNSON AND JOHNSON
  Company Number: CA-JNJFOC-20241070636

PATIENT
  Age: 67 Year
  Sex: Female

DRUGS (6)
  1. REMICADE [Suspect]
     Active Substance: INFLIXIMAB
     Indication: Crohn^s disease
     Route: 041
  2. REMICADE [Suspect]
     Active Substance: INFLIXIMAB
     Route: 041
  3. REMICADE [Suspect]
     Active Substance: INFLIXIMAB
     Route: 041
     Dates: start: 20121116
  4. REMICADE [Suspect]
     Active Substance: INFLIXIMAB
     Route: 041
  5. PREDNISONE [Concomitant]
     Active Substance: PREDNISONE
     Indication: Product used for unknown indication
     Route: 065
  6. COBAMAMIDE [Concomitant]
     Active Substance: COBAMAMIDE

REACTIONS (4)
  - Sepsis [Recovered/Resolved]
  - Crohn^s disease [Recovering/Resolving]
  - Transfusion [Recovered/Resolved]
  - Off label use [Unknown]
